FAERS Safety Report 5534562-8 (Version None)
Quarter: 2007Q4

REPORT INFORMATION
  Report Type: 
  Country: None (occurrence: None)
  Receive Date: 20071204
  Receipt Date: 20071204
  Transmission Date: 20080405
  Serious: Yes (Life-Threatening, Hospitalization, Other)
  Sender: FDA-Public Use
  Company Number: None

PATIENT
  Age: 60 Year
  Sex: Female
  Weight: 77.1115 kg

DRUGS (2)
  1. BYETTA [Suspect]
     Indication: TYPE 2 DIABETES MELLITUS
     Dosage: 5MG BID TRANSDERMAL;  10MG BID TRANSDERMAL
     Route: 062
     Dates: start: 20060901, end: 20070115
  2. BYETTA [Suspect]
     Indication: TYPE 2 DIABETES MELLITUS
     Dosage: 5MG BID TRANSDERMAL;  10MG BID TRANSDERMAL
     Route: 062
     Dates: start: 20070115, end: 20070519

REACTIONS (7)
  - ADRENAL DISORDER [None]
  - GENERAL PHYSICAL HEALTH DETERIORATION [None]
  - PANCREAS INFECTION [None]
  - PANCREATIC DUCT OBSTRUCTION [None]
  - PANCREATITIS ACUTE [None]
  - PANCREATITIS NECROTISING [None]
  - RENAL FAILURE [None]
